FAERS Safety Report 12896936 (Version 1)
Quarter: 2016Q4

REPORT INFORMATION
  Report Type: Spontaneous
  Country: US (occurrence: US)
  Receive Date: 20161031
  Receipt Date: 20161031
  Transmission Date: 20170207
  Serious: No
  Sender: FDA-Public Use
  Company Number: US-PFIZER INC-2016501652

PATIENT
  Age: 54 Year
  Sex: Male
  Weight: 98 kg

DRUGS (12)
  1. LYRICA [Suspect]
     Active Substance: PREGABALIN
     Indication: NEUROPATHY PERIPHERAL
     Dosage: 75 MG, 2X/DAY
     Route: 048
     Dates: start: 201607, end: 20161007
  2. LASIX [Concomitant]
     Active Substance: FUROSEMIDE
     Indication: FLUID RETENTION
     Dosage: 20 MG, ALTERNATE DAY (EVERY OTHER DAY)
     Route: 048
  3. DAILY VITAMINS [Concomitant]
     Dosage: UNK
  4. HYDROXYZINE [Concomitant]
     Active Substance: HYDROXYZINE\HYDROXYZINE HYDROCHLORIDE
     Dosage: 10 MG, 1X/DAY (ONE A DAY)
     Route: 048
  5. OXYCODONE/PARACETAMOL [Concomitant]
     Indication: PAIN
     Dosage: [OXYCODONE 7.5 MG] / [ACETAMINOPHEN 325 MG], 2X/DAY
     Route: 048
  6. FISH OIL [Concomitant]
     Active Substance: FISH OIL
     Dosage: 1200 MG, 4X/DAY, OIL CAPSULE
  7. LOSARTAN POTASSIUM. [Concomitant]
     Active Substance: LOSARTAN POTASSIUM
     Indication: BLOOD CHOLESTEROL
     Dosage: 100 MG, 1X/DAY
     Route: 048
  8. ULORIC [Concomitant]
     Active Substance: FEBUXOSTAT
     Indication: BLOOD URIC ACID INCREASED
     Dosage: 40 MG, 1X/DAY  (ONE A DAY)
     Route: 048
  9. LIPITOR [Concomitant]
     Active Substance: ATORVASTATIN CALCIUM
     Indication: BLOOD CHOLESTEROL
     Dosage: 40 MG, 1X/DAY
     Route: 048
  10. ASPIRIN. [Concomitant]
     Active Substance: ASPIRIN
     Indication: CARDIAC DISORDER
     Dosage: 81 MG, 1X/DAY
     Route: 048
  11. VITAMIN D3 [Concomitant]
     Active Substance: CHOLECALCIFEROL
     Indication: VITAMIN D DECREASED
     Dosage: 2000 IU, 1X/DAY
     Route: 048
  12. METOPROLOL TARTRATE. [Concomitant]
     Active Substance: METOPROLOL TARTRATE
     Indication: HEART RATE ABNORMAL
     Dosage: 25 MG, 2X/DAY
     Route: 048

REACTIONS (2)
  - Blister [Recovering/Resolving]
  - Renal function test abnormal [Unknown]

NARRATIVE: CASE EVENT DATE: 201608
